FAERS Safety Report 25649112 (Version 5)
Quarter: 2025Q4

REPORT INFORMATION
  Report Type: Spontaneous
  Country: EU (occurrence: EU)
  Receive Date: 20250806
  Receipt Date: 20251017
  Transmission Date: 20260118
  Serious: Yes (Life-Threatening, Hospitalization)
  Sender: MERCK SHARP & DOHME LLC
  Company Number: EU-BRISTOL-MYERS SQUIBB COMPANY-2025-102575

PATIENT
  Age: 65 Year
  Sex: Female
  Weight: 85 kg

DRUGS (8)
  1. PEMBROLIZUMAB [Suspect]
     Active Substance: PEMBROLIZUMAB
     Indication: Malignant melanoma stage III
     Dosage: 200 MG, EVERY 3 WEEKS
     Route: 042
     Dates: start: 20200612, end: 20200814
  2. YERVOY [Suspect]
     Active Substance: IPILIMUMAB
     Indication: Metastatic malignant melanoma
     Dosage: 3 MG/KG EVERY 3 WEEKS, STRENGTH 50 MG/10
     Dates: start: 20240820, end: 20240820
  3. YERVOY [Suspect]
     Active Substance: IPILIMUMAB
     Indication: Metastatic malignant melanoma
     Dosage: 3 MG/KG EVERY 3 WEEKS, STRENGTH 50 MG/10
     Dates: start: 20240916, end: 20241028
  4. OPDIVO [Suspect]
     Active Substance: NIVOLUMAB
     Indication: Metastatic malignant melanoma
     Dosage: 1 MG/KG EVERY 3 WEEKS, STRENGTH: 120 MG/12 ML
     Dates: start: 20240820, end: 20240820
  5. OPDIVO [Suspect]
     Active Substance: NIVOLUMAB
     Indication: Metastatic malignant melanoma
     Dosage: 1 MG/KG EVERY 3 WEEKS
     Dates: start: 20250108, end: 2025
  6. OPDIVO [Suspect]
     Active Substance: NIVOLUMAB
     Indication: Metastatic malignant melanoma
     Dosage: 1 MG/KG EVERY 3 WEEKS, STRENGTH: 120 MG/12 ML
     Dates: start: 20240916, end: 20240916
  7. OPDIVO [Suspect]
     Active Substance: NIVOLUMAB
     Indication: Metastatic malignant melanoma
     Dosage: 1 MG/KG EVERY 3 WEEKS, STRENGTH: 120 MG/12 ML
     Dates: start: 20241007, end: 20241007
  8. OPDIVO [Suspect]
     Active Substance: NIVOLUMAB
     Indication: Metastatic malignant melanoma
     Dosage: 1 MG/KG EVERY 3 WEEKS, STRENGTH: 120 MG/12 ML
     Dates: start: 20241028, end: 20241028

REACTIONS (2)
  - Hypercalcaemia [Recovered/Resolved]
  - Immune-mediated hepatitis [Recovered/Resolved]

NARRATIVE: CASE EVENT DATE: 20241028
